FAERS Safety Report 8329509 (Version 3)
Quarter: 2014Q2

REPORT INFORMATION
  Report Type: Report from Study
  Country: US (occurrence: US)
  Receive Date: 20120110
  Receipt Date: 20140626
  Transmission Date: 20141212
  Serious: Yes (Hospitalization, Other)
  Sender: FDA-Public Use
  Company Number: US-ACTELION-A-US2010-39662

PATIENT
  Age: 51 Year
  Sex: Male

DRUGS (4)
  1. TRACLEER [Suspect]
     Indication: PULMONARY ARTERIAL HYPERTENSION
     Dosage: UNK
     Route: 048
     Dates: start: 20060524
  2. ADCIRCA [Concomitant]
  3. COUMADIN [Concomitant]
  4. DIGOXIN [Concomitant]

REACTIONS (6)
  - Atrial fibrillation [Unknown]
  - Syncope [Unknown]
  - Dyspnoea [Unknown]
  - Cardiac ablation [Unknown]
  - Medical device complication [Unknown]
  - Asthma [Unknown]
